FAERS Safety Report 9980786 (Version 1)
Quarter: 2014Q1

REPORT INFORMATION
  Report Type: Spontaneous
  Country: DE (occurrence: DE)
  Receive Date: 20140307
  Receipt Date: 20140307
  Transmission Date: 20141002
  Serious: Yes (Other)
  Sender: FDA-Public Use
  Company Number: DE-ELI_LILLY_AND_COMPANY-DE201402007861

PATIENT
  Age: 47 Year
  Sex: Female
  Weight: 90 kg

DRUGS (4)
  1. CYMBALTA [Suspect]
     Indication: NEURALGIA
     Dosage: 60 MG, QD
     Route: 048
     Dates: start: 201311, end: 20140113
  2. PREGABALIN [Concomitant]
     Indication: NEURALGIA
     Dosage: 150 MG, TID
     Route: 065
  3. AMITRIPTYLINOXIDE [Concomitant]
     Indication: NEURALGIA
     Dosage: 60 MG, QD
     Route: 065
  4. TAPENTADOL [Concomitant]
     Indication: NEURALGIA
     Dosage: 100 MG, TID
     Route: 065

REACTIONS (3)
  - Stridor [Recovering/Resolving]
  - Cough [Recovering/Resolving]
  - Dysgeusia [Recovering/Resolving]
